FAERS Safety Report 12132756 (Version 3)
Quarter: 2016Q4

REPORT INFORMATION
  Report Type: Spontaneous
  Country: US (occurrence: US)
  Receive Date: 20160301
  Receipt Date: 20161026
  Transmission Date: 20170206
  Serious: Yes (Hospitalization, Other)
  Sender: FDA-Public Use
  Company Number: US-JNJFOC-20160209121

PATIENT
  Age: 59 Year
  Sex: Female
  Weight: 49.9 kg

DRUGS (5)
  1. NORCO [Concomitant]
     Active Substance: ACETAMINOPHEN\HYDROCODONE BITARTRATE
     Indication: PAIN
     Route: 065
     Dates: start: 2010
  2. MOXIFLOXACIN. [Suspect]
     Active Substance: MOXIFLOXACIN
     Indication: PRODUCT USED FOR UNKNOWN INDICATION
     Route: 048
  3. LEVAQUIN [Suspect]
     Active Substance: LEVOFLOXACIN
     Indication: PNEUMONIA
     Route: 048
     Dates: start: 20100423
  4. LEVAQUIN [Suspect]
     Active Substance: LEVOFLOXACIN
     Indication: PNEUMONIA
     Route: 048
     Dates: start: 20100427
  5. CIPRO [Suspect]
     Active Substance: CIPROFLOXACIN HYDROCHLORIDE
     Indication: PRODUCT USED FOR UNKNOWN INDICATION
     Route: 048

REACTIONS (1)
  - Neuropathy peripheral [Not Recovered/Not Resolved]

NARRATIVE: CASE EVENT DATE: 20101110
